FAERS Safety Report 17421230 (Version 7)
Quarter: 2020Q4

REPORT INFORMATION
  Report Type: Report from Study
  Country: US (occurrence: US)
  Receive Date: 20200214
  Receipt Date: 20201028
  Transmission Date: 20210113
  Serious: Yes (Hospitalization)
  Sender: FDA-Public Use
  Company Number: NVSC2020US037907

PATIENT
  Age: 83 Year
  Sex: Male

DRUGS (3)
  1. ENTRESTO [Suspect]
     Active Substance: SACUBITRIL\VALSARTAN
     Indication: CARDIAC FAILURE CHRONIC
     Dosage: 0.5 DF, BID
     Route: 048
     Dates: start: 202002
  2. ENTRESTO [Suspect]
     Active Substance: SACUBITRIL\VALSARTAN
     Dosage: 0.5 DF, QD
     Route: 048
  3. ENTRESTO [Suspect]
     Active Substance: SACUBITRIL\VALSARTAN
     Indication: CARDIAC FAILURE CONGESTIVE
     Dosage: 1 DF, BID (24MG SACUBITRIL /26MGVALSARTAN)
     Route: 048
     Dates: start: 202001

REACTIONS (11)
  - Musculoskeletal stiffness [Not Recovered/Not Resolved]
  - Arthritis [Unknown]
  - Pain in extremity [Not Recovered/Not Resolved]
  - Prescribed underdose [Recovering/Resolving]
  - Fluid retention [Unknown]
  - Wrong technique in product usage process [Recovering/Resolving]
  - Device malfunction [Unknown]
  - Gout [Not Recovered/Not Resolved]
  - Dyspnoea [Unknown]
  - Renal disorder [Unknown]
  - Hypotension [Not Recovered/Not Resolved]

NARRATIVE: CASE EVENT DATE: 202002
